FAERS Safety Report 9340175 (Version 1)
Quarter: 2013Q2

REPORT INFORMATION
  Report Type: Other
  Country: GB (occurrence: GB)
  Receive Date: 20130610
  Receipt Date: 20130610
  Transmission Date: 20140414
  Serious: Yes (Death)
  Sender: FDA-Public Use
  Company Number: GB-WATSON-2013-10212

PATIENT
  Age: 63 Year
  Sex: Male

DRUGS (9)
  1. HEPARIN (UNKNOWN) [Suspect]
     Indication: ACUTE MYOCARDIAL INFARCTION
     Dosage: 1000 UNITS PER HOUR
     Route: 042
     Dates: start: 20130503, end: 20130505
  2. HEPARIN (UNKNOWN) [Suspect]
     Dosage: 500 UNITS PER HOUR
     Route: 065
  3. TICAGRELOR [Suspect]
     Indication: MYOCARDIAL INFARCTION
     Dosage: 90 MG, BID
     Route: 048
     Dates: start: 20130503, end: 20130505
  4. ASPIRIN (UNKNOWN) [Suspect]
     Indication: ACUTE MYOCARDIAL INFARCTION
     Dosage: 75 MG, DAILY
     Route: 048
     Dates: start: 20130504, end: 20130505
  5. WARFARIN                           /00014802/ [Concomitant]
     Indication: PRODUCT USED FOR UNKNOWN INDICATION
     Route: 065
  6. SIMVASTATIN +PHARMA [Concomitant]
     Indication: PRODUCT USED FOR UNKNOWN INDICATION
     Dosage: 40 MG, DAILY
     Route: 065
  7. LISINOPRIL [Concomitant]
     Indication: PRODUCT USED FOR UNKNOWN INDICATION
     Dosage: 30 MG, UNKNOWN
     Route: 065
  8. DIGOXIN [Concomitant]
     Indication: PRODUCT USED FOR UNKNOWN INDICATION
     Dosage: 125 MCG, UNKNOWN
     Route: 065
  9. FRUSEMIDE                          /00032601/ [Concomitant]
     Indication: PRODUCT USED FOR UNKNOWN INDICATION
     Dosage: 40 MG, UNKNOWN
     Route: 065

REACTIONS (5)
  - Subdural haemorrhage [Fatal]
  - Cardiac arrest [Fatal]
  - Unresponsive to stimuli [Fatal]
  - Brain injury [Fatal]
  - Renal failure acute [Fatal]
